FAERS Safety Report 24605556 (Version 4)
Quarter: 2025Q2

REPORT INFORMATION
  Report Type: Spontaneous
  Country: US (occurrence: US)
  Receive Date: 20241111
  Receipt Date: 20250511
  Transmission Date: 20250716
  Serious: No
  Sender: SANOFI AVENTIS
  Company Number: US-SA-2024SA320833

PATIENT
  Age: 66 Year
  Sex: Female

DRUGS (1)
  1. DUPIXENT [Suspect]
     Active Substance: DUPILUMAB
     Indication: Chronic obstructive pulmonary disease
     Dosage: 300 MG, QOW
     Route: 058

REACTIONS (16)
  - Joint swelling [Not Recovered/Not Resolved]
  - Somnolence [Recovering/Resolving]
  - Dry skin [Unknown]
  - Malaise [Unknown]
  - Eyelid margin crusting [Unknown]
  - Ear dryness [Unknown]
  - Dyspnoea [Unknown]
  - Oral candidiasis [Unknown]
  - Chronic obstructive pulmonary disease [Unknown]
  - Productive cough [Unknown]
  - Upper respiratory tract infection [Unknown]
  - Skin exfoliation [Unknown]
  - Dry eye [Unknown]
  - Exposure via skin contact [Unknown]
  - Accidental exposure to product [Unknown]
  - Therapeutic response shortened [Unknown]
